FAERS Safety Report 18576346 (Version 1)
Quarter: 2020Q4

REPORT INFORMATION
  Report Type: Report from Study
  Country: US (occurrence: US)
  Receive Date: 20201203
  Receipt Date: 20201203
  Transmission Date: 20210114
  Serious: Yes (Life-Threatening)
  Sender: FDA-Public Use
  Company Number: US-GILEAD-2020-0506580

PATIENT
  Age: 67 Year
  Sex: Female
  Weight: 64 kg

DRUGS (10)
  1. CYCLOPHOSPHAMIDE. [Suspect]
     Active Substance: CYCLOPHOSPHAMIDE
     Indication: BONE MARROW CONDITIONING REGIMEN
     Dosage: ^846^
     Route: 042
     Dates: start: 20201119, end: 20201119
  2. RED BLOOD CELLS [Concomitant]
     Active Substance: HUMAN RED BLOOD CELL
     Dosage: 286,ML,ONCE
     Route: 042
     Dates: start: 20201127, end: 20201127
  3. ANTICOAGULANT CITRATE DEXTROSE SOLUTION USP (ACD) FORMULA A [Concomitant]
     Dosage: 200,OTHER,ONCE
     Route: 042
     Dates: start: 20201106, end: 20201106
  4. RITUXIMAB. [Suspect]
     Active Substance: RITUXIMAB
     Indication: B-CELL LYMPHOMA REFRACTORY
     Dosage: ^633.75^
     Route: 042
     Dates: start: 20201119, end: 20201119
  5. TOCILIZUMAB. [Concomitant]
     Active Substance: TOCILIZUMAB
     Dosage: UNSPECIFIED DOSE X 2
     Dates: start: 20201129
  6. AXICABTAGENE CILOLEUCEL [Suspect]
     Active Substance: AXICABTAGENE CILOLEUCEL
     Indication: B-CELL LYMPHOMA REFRACTORY
     Dosage: ^68^, AS PER PROTOCOL
     Route: 042
     Dates: start: 20201124, end: 20201124
  7. CYCLOPHOSPHAMIDE. [Suspect]
     Active Substance: CYCLOPHOSPHAMIDE
     Dosage: ^846^
     Route: 042
     Dates: start: 20201120, end: 20201120
  8. FLUDARABINE [Suspect]
     Active Substance: FLUDARABINE PHOSPHATE
     Dosage: ^51^
     Route: 042
     Dates: start: 20201120, end: 20201120
  9. DEXAMETHASONE. [Concomitant]
     Active Substance: DEXAMETHASONE
     Dosage: ^10^
     Dates: start: 20201129
  10. FLUDARABINE [Suspect]
     Active Substance: FLUDARABINE PHOSPHATE
     Indication: BONE MARROW CONDITIONING REGIMEN
     Dosage: ^51^
     Route: 042
     Dates: start: 20201119, end: 20201119

REACTIONS (2)
  - Tremor [Recovering/Resolving]
  - Aphasia [Recovering/Resolving]

NARRATIVE: CASE EVENT DATE: 20201130
